FAERS Safety Report 15444473 (Version 3)
Quarter: 2019Q3

REPORT INFORMATION
  Report Type: Report from Study
  Country: US (occurrence: US)
  Receive Date: 20180928
  Receipt Date: 20190801
  Transmission Date: 20191004
  Serious: No
  Sender: FDA-Public Use
  Company Number: US-SA-2018SA177541

PATIENT
  Age: 36 Year
  Sex: Male

DRUGS (2)
  1. AGALSIDASE BETA [Suspect]
     Active Substance: AGALSIDASE BETA
     Dosage: 75, Q2
     Route: 041
     Dates: start: 20190510
  2. AGALSIDASE BETA [Suspect]
     Active Substance: AGALSIDASE BETA
     Indication: FABRY^S DISEASE
     Dosage: 70 MG, QOW
     Route: 041
     Dates: start: 20150320

REACTIONS (7)
  - Treatment noncompliance [Unknown]
  - Product dose omission [Unknown]
  - Therapeutic response decreased [Unknown]
  - Gastrointestinal disorder [Recovering/Resolving]
  - Malaise [Recovering/Resolving]
  - Poor venous access [Unknown]
  - Dehydration [Recovering/Resolving]

NARRATIVE: CASE EVENT DATE: 20181221
